FAERS Safety Report 25174598 (Version 1)
Quarter: 2025Q2

REPORT INFORMATION
  Report Type: Spontaneous
  Country: DE (occurrence: DE)
  Receive Date: 20250408
  Receipt Date: 20250408
  Transmission Date: 20250717
  Serious: Yes (Death)
  Sender: PFIZER
  Company Number: None

PATIENT
  Age: 45 Year
  Sex: Male
  Weight: 68 kg

DRUGS (40)
  1. ADRIAMYCIN [Suspect]
     Active Substance: DOXORUBICIN HYDROCHLORIDE
     Indication: Lymphoma
     Route: 042
     Dates: start: 19960106, end: 19960107
  2. DIFLUCAN [Suspect]
     Active Substance: FLUCONAZOLE
     Indication: Candida infection
     Route: 048
     Dates: start: 1995, end: 19951222
  3. DIFLUCAN [Suspect]
     Active Substance: FLUCONAZOLE
     Route: 048
     Dates: start: 19960105
  4. METHIONINE [Suspect]
     Active Substance: METHIONINE
     Indication: Urinary tract infection
     Dosage: 3 DF, 1X/DAY
     Route: 048
     Dates: start: 19951229, end: 19960101
  5. CLEMASTINE FUMARATE [Suspect]
     Active Substance: CLEMASTINE FUMARATE
     Indication: Pruritus
     Route: 042
     Dates: start: 19951223, end: 19951225
  6. ALLOPURINOL [Suspect]
     Active Substance: ALLOPURINOL
     Indication: Hyperuricaemia
     Route: 048
     Dates: start: 19951213, end: 19951213
  7. ACETAMINOPHEN [Suspect]
     Active Substance: ACETAMINOPHEN
     Indication: Pain
     Route: 054
     Dates: start: 19951222, end: 19951222
  8. AMPHO-MORONAL [Suspect]
     Active Substance: AMPHOTERICIN B
     Indication: Mucosal inflammation
     Route: 055
     Dates: start: 19951213, end: 19960101
  9. AMPHOTERICIN B [Suspect]
     Active Substance: AMPHOTERICIN B
     Indication: Infection
     Route: 055
     Dates: start: 19951214, end: 19951231
  10. TROPISETRON HYDROCHLORIDE [Suspect]
     Active Substance: TROPISETRON HYDROCHLORIDE
     Indication: Vomiting
     Route: 042
     Dates: start: 19960101, end: 19960101
  11. NOVALGIN (METAMIZOLE SODIUM) [Suspect]
     Active Substance: METAMIZOLE SODIUM
     Indication: Pain
     Route: 042
     Dates: start: 19960103, end: 19960103
  12. OMEPRAZOLE [Suspect]
     Active Substance: OMEPRAZOLE
     Indication: Gastrointestinal disorder
     Route: 042
     Dates: start: 19951218
  13. CYTARABINE [Suspect]
     Active Substance: CYTARABINE
     Indication: Lymphoma
     Route: 065
     Dates: start: 19951216, end: 19951231
  14. DEXPANTHENOL [Suspect]
     Active Substance: DEXPANTHENOL
     Indication: Mucosal inflammation
     Route: 065
     Dates: start: 1995, end: 19951226
  15. DEXPANTHENOL [Suspect]
     Active Substance: DEXPANTHENOL
     Route: 065
     Dates: start: 1995, end: 19951231
  16. BETAISODONA [Suspect]
     Active Substance: POVIDONE-IODINE
     Indication: Mucosal inflammation
     Route: 065
     Dates: start: 1995, end: 19951231
  17. BUTYLSCOPOLAMINE BROMIDE [Suspect]
     Active Substance: BUTYLSCOPOLAMINE BROMIDE
     Indication: Gastrointestinal disorder
     Dosage: 2 ML, DAILY
     Route: 042
     Dates: start: 19951219, end: 19951219
  18. CIPROFLOXACIN HYDROCHLORIDE [Suspect]
     Active Substance: CIPROFLOXACIN HYDROCHLORIDE
     Indication: Infection
     Route: 048
     Dates: start: 1995
  19. METRONIDAZOLE [Suspect]
     Active Substance: METRONIDAZOLE
     Indication: Pyrexia
     Route: 048
     Dates: start: 19951219, end: 19951226
  20. CYCLOPHOSPHAMIDE [Suspect]
     Active Substance: CYCLOPHOSPHAMIDE
     Indication: Lymphoma
     Route: 048
     Dates: start: 19960103, end: 19960107
  21. DEXAMETHASONE [Suspect]
     Active Substance: DEXAMETHASONE
     Indication: Lymphoma
     Route: 065
     Dates: start: 1995, end: 1996
  22. DEXAMETHASONE [Suspect]
     Active Substance: DEXAMETHASONE
     Indication: Lymphoma
     Route: 048
     Dates: start: 1995
  23. CEFTAZIDIME [Concomitant]
     Active Substance: CEFTAZIDIME
     Indication: Pyrexia
     Route: 042
     Dates: start: 19951217, end: 19951222
  24. FUROSEMIDE [Concomitant]
     Active Substance: FUROSEMIDE
     Indication: Neoplasm
     Route: 042
     Dates: start: 19960103, end: 19960103
  25. TOBRAMYCIN SULFATE [Concomitant]
     Active Substance: TOBRAMYCIN SULFATE
     Route: 042
     Dates: start: 19951224, end: 19951231
  26. LEUCOVORIN [Concomitant]
     Active Substance: LEUCOVORIN\LEUCOVORIN CALCIUM
     Indication: Neoplasm
     Route: 048
     Dates: start: 19960105, end: 19960122
  27. LIPOVENOES [GLYCEROL;GLYCINE MAX SEED OIL;PHOSPHOLIPIDS EGG] [Concomitant]
     Route: 042
     Dates: start: 19960106, end: 19960106
  28. LIPOVENOES [GLYCEROL;GLYCINE MAX SEED OIL;PHOSPHOLIPIDS EGG] [Concomitant]
     Route: 042
     Dates: start: 19960108, end: 19960108
  29. MEPERIDINE [Concomitant]
     Active Substance: MEPERIDINE
     Indication: Pain
     Route: 042
     Dates: start: 19951223, end: 19951225
  30. LIQUEMIN [HEPARIN] [Concomitant]
     Indication: Thrombosis
     Route: 058
     Dates: start: 19960103
  31. LIQUIDEPUR [CARUM CARVI;ILLICIUM VERUM OIL;PIMPINELLA ANISUM OIL;SENNA [Concomitant]
     Indication: Constipation
     Route: 048
     Dates: start: 19951222, end: 19951222
  32. LIQUIDEPUR [CARUM CARVI;ILLICIUM VERUM OIL;PIMPINELLA ANISUM OIL;SENNA [Concomitant]
     Route: 048
     Dates: start: 19951224, end: 19951226
  33. MAGNESIUM [Concomitant]
     Active Substance: MAGNESIUM
     Indication: Hypomagnesaemia
     Route: 048
     Dates: start: 19951217, end: 19951227
  34. METHOTREXATE SODIUM [Concomitant]
     Active Substance: METHOTREXATE SODIUM
     Indication: Lymphoma
     Route: 065
     Dates: start: 1995, end: 1996
  35. MULTIBIONTA NUTRITION [ASCORBIC ACID;COLECALCIFEROL;DEXPANTHENOL;DL-AL [Concomitant]
     Indication: Vitamin D deficiency
     Route: 042
     Dates: start: 19960103, end: 19960109
  36. NUTRIFLEX [ACETIC ACID;ALANINE;AMINO ACIDS NOS;ARGININE;ASPARTIC ACID; [Concomitant]
     Route: 042
     Dates: start: 19951224, end: 19960109
  37. PREDNISOLONE SODIUM SUCCINATE [Concomitant]
     Active Substance: PREDNISOLONE SODIUM SUCCINATE
     Route: 042
     Dates: start: 19951223, end: 19951223
  38. FLUCLOXACILLIN SODIUM [Concomitant]
     Active Substance: FLUCLOXACILLIN SODIUM
     Indication: Pyrexia
     Route: 042
     Dates: start: 19951217, end: 19951226
  39. MESNA [Concomitant]
     Active Substance: MESNA
     Indication: Acute kidney injury
     Route: 042
     Dates: start: 19960103, end: 19960108
  40. CILASTATIN SODIUM\IMIPENEM [Concomitant]
     Active Substance: CILASTATIN SODIUM\IMIPENEM
     Route: 042
     Dates: start: 19951224, end: 19951231

REACTIONS (2)
  - Stevens-Johnson syndrome [Fatal]
  - Toxic epidermal necrolysis [Fatal]

NARRATIVE: CASE EVENT DATE: 19960110
